FAERS Safety Report 12072020 (Version 1)
Quarter: 2016Q1

REPORT INFORMATION
  Report Type: Spontaneous
  Country: US (occurrence: None)
  Receive Date: 20160211
  Receipt Date: 20160211
  Transmission Date: 20160526
  Serious: Yes (Hospitalization)
  Sender: FDA-Public Use
  Company Number: None

PATIENT
  Age: 30 Year
  Sex: Female
  Weight: 108 kg

DRUGS (7)
  1. ALBUTEROL INHALER [Concomitant]
     Active Substance: ALBUTEROL
  2. VICTOZA [Concomitant]
     Active Substance: LIRAGLUTIDE
  3. BRIO [Concomitant]
  4. BYDUREON [Concomitant]
     Active Substance: EXENATIDE
  5. PROZAC [Concomitant]
     Active Substance: FLUOXETINE HYDROCHLORIDE
  6. METFORMIN [Concomitant]
     Active Substance: METFORMIN HYDROCHLORIDE
  7. LISINOPRIL 5MG UNKNOWN [Suspect]
     Active Substance: LISINOPRIL
     Indication: HYPERTENSION
     Dosage: LESS THAN 2 MONTHS 1 TAB QD ORAL
     Route: 048

REACTIONS (3)
  - Rash [None]
  - Swollen tongue [None]
  - Wheezing [None]

NARRATIVE: CASE EVENT DATE: 20160201
